FAERS Safety Report 5387073-7 (Version None)
Quarter: 2007Q3

REPORT INFORMATION
  Report Type: 
  Country: None (occurrence: None)
  Receive Date: 20070710
  Receipt Date: 20070628
  Transmission Date: 20080115
  Serious: Yes (Hospitalization)
  Sender: FDA-Public Use
  Company Number: 234453K07USA

PATIENT
  Age: 52 Year
  Sex: Male
  Weight: 92.5338 kg

DRUGS (7)
  1. REBIF [Suspect]
     Indication: MULTIPLE SCLEROSIS
     Dosage: 44 MCG, 3 IN 1 WEEKS, SUBCUTANEOUS
     Route: 058
     Dates: start: 20070201, end: 20070524
  2. REBIF [Suspect]
     Indication: MULTIPLE SCLEROSIS
     Dosage: 44 MCG, 3 IN 1 WEEKS, SUBCUTANEOUS
     Route: 058
     Dates: start: 20070601, end: 20070605
  3. PREVACID [Concomitant]
  4. BACLOFEN [Concomitant]
  5. PAXIL (PAROXETNIE HYDROCHLORIDE) [Concomitant]
  6. DETROL LA [Concomitant]
  7. PROVIGIL [Concomitant]

REACTIONS (7)
  - ALANINE AMINOTRANSFERASE INCREASED [None]
  - ASPARTATE AMINOTRANSFERASE INCREASED [None]
  - DUODENAL OBSTRUCTION [None]
  - GALLBLADDER DISORDER [None]
  - LIVER FUNCTION TEST ABNORMAL [None]
  - PANCREATIC CYST [None]
  - PANCREATITIS [None]
